FAERS Safety Report 6866942-2 (Version None)
Quarter: 2010Q3

REPORT INFORMATION
  Report Type: 
  Country: None (occurrence: None)
  Receive Date: 20100722
  Receipt Date: 20100720
  Transmission Date: 20110219
  Serious: Yes (Death)
  Sender: FDA-Public Use
  Company Number: GXBR2010US01192

PATIENT
  Sex: Female

DRUGS (1)
  1. RANITIDINE HCL TABLETS (I) (NGX) [Suspect]
     Dosage: UNK MG, UNK

REACTIONS (2)
  - ABDOMINAL DISTENSION [None]
  - CARDIAC DISORDER [None]
